FAERS Safety Report 14563813 (Version 3)
Quarter: 2018Q2

REPORT INFORMATION
  Report Type: Spontaneous
  Country: CA (occurrence: CA)
  Receive Date: 20180222
  Receipt Date: 20180409
  Transmission Date: 20180711
  Serious: Yes (Other)
  Sender: FDA-Public Use
  Company Number: CA-BAYER-2018-030848

PATIENT
  Age: 65 Year
  Sex: Male

DRUGS (18)
  1. FENTANYL. [Concomitant]
     Active Substance: FENTANYL
  2. VITAMIN D [Concomitant]
     Active Substance: CHOLECALCIFEROL
     Dosage: 1000 IU, DAILY
  3. XOFIGO [Suspect]
     Active Substance: RADIUM RA-223 DICHLORIDE
     Indication: METASTASES TO BONE
     Dosage: 4860 KBQ, Q4WK
     Route: 042
     Dates: start: 20171221, end: 20171221
  4. AMLODIPINE [Concomitant]
     Active Substance: AMLODIPINE BESYLATE
     Dosage: 10 MG, DAILY
     Route: 048
  5. MORPHINE [Concomitant]
     Active Substance: MORPHINE
     Dosage: 10 MG, PRN
  6. XOFIGO [Suspect]
     Active Substance: RADIUM RA-223 DICHLORIDE
     Indication: HORMONE-REFRACTORY PROSTATE CANCER
     Dosage: 4620 KBQ, Q4WK
     Route: 042
     Dates: start: 20171116, end: 20171116
  7. FLUCONAZOLE. [Concomitant]
     Active Substance: FLUCONAZOLE
  8. MORPHINE [Concomitant]
     Active Substance: MORPHINE
     Dosage: 30 MG, BID
     Route: 048
  9. FLUTICASONE. [Concomitant]
     Active Substance: FLUTICASONE
  10. DENOSUMAB [Concomitant]
     Active Substance: DENOSUMAB
  11. OMEPRAZOLE. [Concomitant]
     Active Substance: OMEPRAZOLE
     Dosage: 20 MG, DAILY
  12. XOFIGO [Suspect]
     Active Substance: RADIUM RA-223 DICHLORIDE
     Indication: HORMONE-REFRACTORY PROSTATE CANCER
     Dosage: 5070 KBQ, Q4WK
     Route: 042
     Dates: start: 20180118, end: 20180118
  13. GABAPENTIN. [Concomitant]
     Active Substance: GABAPENTIN
  14. HYDROCHLOROTHIAZIDE. [Concomitant]
     Active Substance: HYDROCHLOROTHIAZIDE
     Dosage: DAILY DOSE 25 MG
     Route: 048
  15. CALCIUM [Concomitant]
     Active Substance: CALCIUM
     Dosage: 650 MG, DAILY
     Route: 048
  16. DEXAMETHASON [Concomitant]
     Active Substance: DEXAMETHASONE
  17. SALBUTAMOL [Concomitant]
     Active Substance: ALBUTEROL
  18. LUPRON [Concomitant]
     Active Substance: LEUPROLIDE ACETATE

REACTIONS (4)
  - Urinary bladder haemorrhage [None]
  - Haematuria [None]
  - Pleural effusion [None]
  - Platelet count decreased [None]

NARRATIVE: CASE EVENT DATE: 20180311
